FAERS Safety Report 7242427-9 (Version None)
Quarter: 2011Q1

REPORT INFORMATION
  Report Type: 
  Country: None (occurrence: None)
  Receive Date: 20110125
  Receipt Date: 20110118
  Transmission Date: 20110831
  Serious: No
  Sender: FDA-Public Use
  Company Number: US-BIOGENIDEC-2011BI002311

PATIENT
  Sex: Female

DRUGS (3)
  1. TYSABRI [Suspect]
     Indication: MULTIPLE SCLEROSIS
     Route: 042
     Dates: end: 20100913
  2. TYSABRI [Suspect]
     Route: 042
     Dates: start: 20080324, end: 20100419
  3. AMPYRA [Concomitant]
     Dates: start: 20100101

REACTIONS (1)
  - MOBILITY DECREASED [None]
